FAERS Safety Report 24252209 (Version 1)
Quarter: 2024Q3

REPORT INFORMATION
  Report Type: Spontaneous
  Country: GB (occurrence: GB)
  Receive Date: 20240827
  Receipt Date: 20240827
  Transmission Date: 20241016
  Serious: Yes (Other)
  Sender: SANDOZ
  Company Number: None

PATIENT
  Age: 29 Year
  Sex: Female
  Weight: 56 kg

DRUGS (1)
  1. CLARITHROMYCIN [Suspect]
     Active Substance: CLARITHROMYCIN
     Indication: Folliculitis
     Dosage: 500MG EVERY 12 HOURS
     Route: 065
     Dates: start: 20240820

REACTIONS (4)
  - Muscle fatigue [Not Recovered/Not Resolved]
  - Dysgeusia [Not Recovered/Not Resolved]
  - Anal rash [Not Recovered/Not Resolved]
  - Insomnia [Not Recovered/Not Resolved]
